FAERS Safety Report 24916711 (Version 1)
Quarter: 2025Q1

REPORT INFORMATION
  Report Type: Spontaneous
  Country: US (occurrence: None)
  Receive Date: 20250131
  Receipt Date: 20250131
  Transmission Date: 20250409
  Serious: Yes (Other)
  Sender: FDA-CTU
  Company Number: None

PATIENT
  Age: 57 Year
  Sex: Female
  Weight: 76.5 kg

DRUGS (13)
  1. MOUNJARO [Suspect]
     Active Substance: TIRZEPATIDE
     Indication: Glycosylated haemoglobin increased
     Route: 058
     Dates: start: 20250123
  2. OZEMPIC [Suspect]
     Active Substance: SEMAGLUTIDE
  3. TRULICITY [Suspect]
     Active Substance: DULAGLUTIDE
  4. OMEPRAZOLE [Concomitant]
     Active Substance: OMEPRAZOLE
  5. LEVOTHYROXINE [Concomitant]
     Active Substance: LEVOTHYROXINE
  6. PAROXETINE [Concomitant]
     Active Substance: PAROXETINE
  7. LOSARTAN [Concomitant]
     Active Substance: LOSARTAN
  8. LANTUS [Concomitant]
     Active Substance: INSULIN GLARGINE
  9. Pioglitizone [Concomitant]
  10. Freestyle Libre 3+ [Concomitant]
  11. TYLENOL [Concomitant]
     Active Substance: ACETAMINOPHEN
  12. ALEVE [Concomitant]
     Active Substance: NAPROXEN SODIUM
  13. Advil when needed [Concomitant]

REACTIONS (7)
  - Drug ineffective [None]
  - Pain in extremity [None]
  - Arthralgia [None]
  - Pain in extremity [None]
  - Back pain [None]
  - Pain [None]
  - Lack of concomitant drug effect [None]

NARRATIVE: CASE EVENT DATE: 20250129
